FAERS Safety Report 4370900-X (Version None)
Quarter: 2004Q2

REPORT INFORMATION
  Report Type: 
  Country: None (occurrence: None)
  Receive Date: 20040601
  Receipt Date: 20040519
  Transmission Date: 20050107
  Serious: Yes (Other)
  Sender: FDA-Public Use
  Company Number: K200400751

PATIENT
  Age: 43 Year
  Sex: Female

DRUGS (3)
  1. ALTACE [Suspect]
     Indication: HYPERTENSION
     Dosage: 5 MG, QD, ORAL; 10 MG, QD, ORAL
     Route: 048
     Dates: start: 20031001, end: 20040216
  2. ALTACE [Suspect]
     Indication: HYPERTENSION
     Dosage: 5 MG, QD, ORAL; 10 MG, QD, ORAL
     Route: 048
     Dates: start: 20040217
  3. BENDROFLUAZIDE [Concomitant]

REACTIONS (2)
  - PERIPHERAL COLDNESS [None]
  - SPLINTER HAEMORRHAGES [None]
